FAERS Safety Report 7775889-9 (Version None)
Quarter: 2011Q3

REPORT INFORMATION
  Report Type: 
  Country: None (occurrence: None)
  Receive Date: 20110923
  Receipt Date: 20110912
  Transmission Date: 20111222
  Serious: Yes (Hospitalization, Other)
  Sender: FDA-Public Use
  Company Number: DE-ELI_LILLY_AND_COMPANY-DE201108003139

PATIENT
  Age: 77 Year
  Sex: Female

DRUGS (8)
  1. METHOTREXATE [Concomitant]
  2. DICLAC                             /00372302/ [Concomitant]
  3. THYREOTOM [Concomitant]
  4. FOLIC ACID [Concomitant]
  5. THYRONAJOD [Concomitant]
  6. CALCILAC [Concomitant]
  7. PANTOZOL                           /02692601/ [Concomitant]
  8. FORTEO [Suspect]
     Indication: OSTEOPOROSIS
     Dosage: 20 UG, QD
     Dates: start: 20100801, end: 20110701

REACTIONS (17)
  - MEAN CELL VOLUME ABNORMAL [None]
  - SERUM FERRITIN INCREASED [None]
  - WEIGHT DECREASED [None]
  - GLUTAMATE DEHYDROGENASE INCREASED [None]
  - ASPARTATE AMINOTRANSFERASE INCREASED [None]
  - C-REACTIVE PROTEIN INCREASED [None]
  - BLOOD CREATININE INCREASED [None]
  - PAIN [None]
  - CARDIAC DISORDER [None]
  - MEAN CELL HAEMOGLOBIN INCREASED [None]
  - SPINAL FRACTURE [None]
  - GAMMA-GLUTAMYLTRANSFERASE INCREASED [None]
  - VERTEBROPLASTY [None]
  - BLOOD LACTATE DEHYDROGENASE INCREASED [None]
  - MULTIPLE MYELOMA [None]
  - BIOPSY BONE [None]
  - THROMBOCYTOPENIA [None]
